FAERS Safety Report 7926777 (Version 6)
Quarter: 2013Q1

REPORT INFORMATION
  Report Type: Spontaneous
  Country: US (occurrence: US)
  Receive Date: 20110502
  Receipt Date: 20130107
  Transmission Date: 20140127
  Serious: No
  Sender: FDA-Public Use
  Company Number: US-ASTRAZENECA-2011SE11835

PATIENT
  Age: 57 Year
  Sex: Female

DRUGS (3)
  1. NEXIUM [Suspect]
     Indication: GASTROOESOPHAGEAL REFLUX DISEASE
     Route: 048
  2. PRILOSEC OTC [Suspect]
     Route: 048
  3. PREVACID [Concomitant]

REACTIONS (10)
  - Back disorder [Unknown]
  - Erosive oesophagitis [Unknown]
  - Gastric disorder [Unknown]
  - Gastrooesophageal reflux disease [Unknown]
  - Oesophageal ulcer [Unknown]
  - Abdominal pain upper [Unknown]
  - Flatulence [Unknown]
  - Malaise [Unknown]
  - Intentional drug misuse [Unknown]
  - Drug ineffective [Unknown]
